FAERS Safety Report 5897229-2 (Version None)
Quarter: 2008Q3

REPORT INFORMATION
  Report Type: 
  Country: None (occurrence: None)
  Receive Date: 20080923
  Receipt Date: 20080911
  Transmission Date: 20090109
  Serious: Yes (Life-Threatening, Hospitalization, Other)
  Sender: FDA-Public Use
  Company Number: 52327

PATIENT
  Age: 8 Month
  Sex: Female
  Weight: 6 kg

DRUGS (1)
  1. LABETALOL HCL [Suspect]
     Indication: AORTA COARCTATION REPAIR
     Dosage: 95MG IV BOLUS
     Route: 040

REACTIONS (6)
  - BLOOD PRESSURE DECREASED [None]
  - HEART RATE DECREASED [None]
  - HYPERHIDROSIS [None]
  - MEDICATION ERROR [None]
  - OVERDOSE [None]
  - SOMNOLENCE [None]
